FAERS Safety Report 18975629 (Version 2)
Quarter: 2021Q2

REPORT INFORMATION
  Report Type: Report from Study
  Country: US (occurrence: US)
  Receive Date: 20210305
  Receipt Date: 20210413
  Transmission Date: 20210717
  Serious: Yes (Death, Hospitalization)
  Sender: FDA-Public Use
  Company Number: NVSC2021US052344

PATIENT
  Sex: Male
  Weight: 160 kg

DRUGS (1)
  1. MYFORTIC [Suspect]
     Active Substance: MYCOPHENOLATE SODIUM
     Indication: PRODUCT USED FOR UNKNOWN INDICATION
     Dosage: UNK
     Route: 065

REACTIONS (5)
  - Pelvic fracture [Fatal]
  - Fall [Fatal]
  - Cardiac failure congestive [Fatal]
  - Kidney transplant rejection [Fatal]
  - Hip fracture [Fatal]
